FAERS Safety Report 13669625 (Version 4)
Quarter: 2018Q1

REPORT INFORMATION
  Report Type: Report from Study
  Country: GB (occurrence: GB)
  Receive Date: 20170620
  Receipt Date: 20180209
  Transmission Date: 20180508
  Serious: Yes (Death, Hospitalization, Other)
  Sender: FDA-Public Use
  Company Number: GB-AMGEN-GBRSL2017090518

PATIENT
  Age: 81 Year
  Sex: Male

DRUGS (1)
  1. ARANESP [Suspect]
     Active Substance: DARBEPOETIN ALFA
     Indication: PRODUCT USED FOR UNKNOWN INDICATION
     Dosage: 80 MUG, UNK
     Route: 065

REACTIONS (6)
  - Unevaluable event [Unknown]
  - Mineral supplementation [Unknown]
  - Bladder cancer [Unknown]
  - Haemoglobin decreased [Unknown]
  - Complication associated with device [Unknown]
  - Death [Fatal]

NARRATIVE: CASE EVENT DATE: 2017
